FAERS Safety Report 18559908 (Version 1)
Quarter: 2020Q4

REPORT INFORMATION
  Report Type: Spontaneous
  Country: US (occurrence: US)
  Receive Date: 20201125
  Receipt Date: 20201125
  Transmission Date: 20210114
  Serious: Yes (Hospitalization)
  Sender: FDA-Public Use
  Company Number: None

PATIENT
  Age: 59 Year
  Sex: Male

DRUGS (9)
  1. LEVOTHYROXIN [Concomitant]
     Active Substance: LEVOTHYROXINE
  2. IPTRATROPIUM/SOL ALBUTER [Concomitant]
  3. METHOTREXATE. [Concomitant]
     Active Substance: METHOTREXATE
  4. BREO ELLIPTA [Concomitant]
     Active Substance: FLUTICASONE FUROATE\VILANTEROL TRIFENATATE
  5. METOPROLOL TAR [Concomitant]
     Active Substance: METOPROLOL TARTRATE
  6. PREDNISONE. [Concomitant]
     Active Substance: PREDNISONE
  7. HUMIRA [Suspect]
     Active Substance: ADALIMUMAB
     Indication: PSORIATIC ARTHROPATHY
     Route: 058
     Dates: start: 20170812
  8. FOLIC ACID. [Concomitant]
     Active Substance: FOLIC ACID
  9. ATORVASTATIN [Concomitant]
     Active Substance: ATORVASTATIN

REACTIONS (2)
  - Psoriatic arthropathy [None]
  - Coronavirus infection [None]

NARRATIVE: CASE EVENT DATE: 20201124
